FAERS Safety Report 4926750-6 (Version None)
Quarter: 2006Q1

REPORT INFORMATION
  Report Type: 
  Country: None (occurrence: None)
  Receive Date: 20060228
  Receipt Date: 20050609
  Transmission Date: 20060701
  Serious: No
  Sender: FDA-Public Use
  Company Number: US-GLAXOSMITHKLINE-A0562030A

PATIENT
  Age: 32 Year
  Sex: Female

DRUGS (4)
  1. LAMICTAL [Suspect]
     Dosage: 12.5MG PER DAY
     Route: 048
     Dates: start: 20050527, end: 20050608
  2. WELLBUTRIN [Concomitant]
  3. ZANTAC [Concomitant]
  4. ADDERALL 10 [Concomitant]
     Route: 065

REACTIONS (1)
  - CONTUSION [None]
